FAERS Safety Report 7504112-5 (Version None)
Quarter: 2011Q2

REPORT INFORMATION
  Report Type: 
  Country: None (occurrence: None)
  Receive Date: 20110525
  Receipt Date: 20110518
  Transmission Date: 20111010
  Serious: No
  Sender: FDA-Public Use
  Company Number: US-PFIZER INC-2011108005

PATIENT
  Sex: Male
  Weight: 74.8 kg

DRUGS (2)
  1. METHADONE [Concomitant]
     Indication: BACK PAIN
     Route: 048
  2. CHANTIX [Suspect]
     Indication: SMOKING CESSATION THERAPY
     Dosage: 0.5 MG, 1X/DAY
     Route: 048
     Dates: start: 20110301, end: 20110501

REACTIONS (6)
  - HYPOAESTHESIA ORAL [None]
  - ABDOMINAL DISCOMFORT [None]
  - TOOTHACHE [None]
  - VOMITING [None]
  - ABNORMAL DREAMS [None]
  - HYPOAESTHESIA FACIAL [None]
